FAERS Safety Report 8182261-9 (Version None)
Quarter: 2012Q1

REPORT INFORMATION
  Report Type: 
  Country: None (occurrence: None)
  Receive Date: 20120302
  Receipt Date: 20120226
  Transmission Date: 20120608
  Serious: Yes (Hospitalization, Other)
  Sender: FDA-Public Use
  Company Number: PHHY2012MX017168

PATIENT
  Sex: Female

DRUGS (5)
  1. EDIPRES [Concomitant]
     Indication: HYPERTENSION
     Dosage: UKN, QD
     Dates: start: 20090201
  2. METOPROLOL SUCCINATE [Concomitant]
     Indication: ANGINA PECTORIS
     Dosage: 0.5 DF, DAILY
     Dates: start: 20020201
  3. RANITIDINE [Concomitant]
     Indication: ABDOMINAL DISCOMFORT
     Dosage: UKN, QD
     Dates: start: 20111201
  4. METOPROLOL SUCCINATE [Concomitant]
     Indication: TACHYCARDIA
  5. DIOVAN HCT [Suspect]
     Indication: HYPERTENSION
     Dosage: 1 DF X (160/12.5 MG), DAILY
     Dates: start: 20110401, end: 20120101

REACTIONS (6)
  - HYPERTENSION [None]
  - THROAT CANCER [None]
  - PAIN [None]
  - HYPERCALCAEMIA [None]
  - ANXIETY [None]
  - DEPRESSION [None]
